FAERS Safety Report 13660420 (Version 1)
Quarter: 2017Q2

REPORT INFORMATION
  Report Type: Spontaneous
  Country: CA (occurrence: CA)
  Receive Date: 20170616
  Receipt Date: 20170616
  Transmission Date: 20170830
  Serious: Yes (Other)
  Sender: FDA-Public Use
  Company Number: CA-TEVA-778094ACC

PATIENT
  Age: 42 Year
  Sex: Female

DRUGS (5)
  1. ZOLEDRONIC ACID INJECTION FOR I.V INFUSION ONLY [Suspect]
     Active Substance: ZOLEDRONIC ACID
     Indication: OSTEOPOROSIS
     Dosage: ONCE
     Route: 041
  2. HYDROCORTISONE. [Concomitant]
     Active Substance: HYDROCORTISONE
  3. OCTREOTIDE. [Concomitant]
     Active Substance: OCTREOTIDE
  4. PANTOLOC [Concomitant]
     Active Substance: PANTOPRAZOLE SODIUM
  5. TOTAL PARENTERAL NUTRITION (TPN) [Concomitant]

REACTIONS (4)
  - Labile blood pressure [Recovered/Resolved]
  - Product substitution issue [Recovered/Resolved]
  - Tachycardia [Recovered/Resolved]
  - Tachypnoea [Recovered/Resolved]
